FAERS Safety Report 4564754-6 (Version None)
Quarter: 2005Q1

REPORT INFORMATION
  Report Type: 
  Country: None (occurrence: None)
  Receive Date: 20050128
  Receipt Date: 20050126
  Transmission Date: 20050727
  Serious: Yes (Death)
  Sender: FDA-Public Use
  Company Number: US-ABBOTT-05P-163-0288317-01

PATIENT
  Sex: Male

DRUGS (4)
  1. RITONAVIR SOFT GELATIN CAPSULES [Suspect]
     Indication: HIV INFECTION
     Route: 048
     Dates: start: 20030805, end: 20031202
  2. SAQUINAVIR [Concomitant]
     Indication: HIV INFECTION
     Route: 048
     Dates: start: 20030805, end: 20031202
  3. DIDANOSINE [Concomitant]
     Indication: HIV INFECTION
     Dates: start: 20030805, end: 20031202
  4. TENOFOVIR [Concomitant]
     Indication: HIV INFECTION
     Dates: start: 20030805, end: 20031202

REACTIONS (2)
  - DEATH [None]
  - DRUG INEFFECTIVE [None]
